FAERS Safety Report 9147816 (Version 4)
Quarter: 2013Q4

REPORT INFORMATION
  Report Type: Report from Study
  Country: US (occurrence: US)
  Receive Date: 20130307
  Receipt Date: 20131022
  Transmission Date: 20140711
  Serious: Yes (Hospitalization, Other)
  Sender: FDA-Public Use
  Company Number: US-US-EMD SERONO, INC.-7197038

PATIENT
  Sex: Female

DRUGS (3)
  1. REBIF [Suspect]
     Indication: MULTIPLE SCLEROSIS
     Route: 058
     Dates: start: 20121128
  2. NITROGLYCERIN [Concomitant]
     Indication: CARDIAC DISORDER
  3. LYRICA [Concomitant]
     Indication: CARDIAC DISORDER

REACTIONS (8)
  - Loss of consciousness [Unknown]
  - Fall [Unknown]
  - Head injury [Unknown]
  - Peroneal nerve palsy [Not Recovered/Not Resolved]
  - Contusion [Not Recovered/Not Resolved]
  - Headache [Not Recovered/Not Resolved]
  - Injection site bruising [Recovered/Resolved]
  - Injection site erythema [Recovered/Resolved]
